FAERS Safety Report 21111742 (Version 1)
Quarter: 2022Q3

REPORT INFORMATION
  Report Type: Spontaneous
  Country: BE (occurrence: BE)
  Receive Date: 20220721
  Receipt Date: 20220721
  Transmission Date: 20221026
  Serious: Yes (Other)
  Sender: FDA-Public Use
  Company Number: BE-FreseniusKabi-FK202210065

PATIENT
  Age: 45 Year
  Sex: Male

DRUGS (2)
  1. PIPERACILLIN AND TAZOBACTAM [Suspect]
     Active Substance: PIPERACILLIN SODIUM\TAZOBACTAM SODIUM
     Indication: Sepsis
  2. NADROPARIN [Suspect]
     Active Substance: NADROPARIN
     Indication: Product used for unknown indication

REACTIONS (3)
  - Immunosuppression [Unknown]
  - Intestinal barrier dysfunction [Unknown]
  - Drug ineffective [Unknown]
